FAERS Safety Report 19459524 (Version 1)
Quarter: 2021Q2

REPORT INFORMATION
  Report Type: Spontaneous
  Country: US (occurrence: US)
  Receive Date: 20210624
  Receipt Date: 20210624
  Transmission Date: 20210717
  Serious: Yes (Other)
  Sender: FDA-Public Use
  Company Number: US-TAKEDA-2021TUS038300

PATIENT
  Sex: Female
  Weight: 59 kg

DRUGS (1)
  1. VYVANSE [Suspect]
     Active Substance: LISDEXAMFETAMINE DIMESYLATE
     Indication: ATTENTION DEFICIT HYPERACTIVITY DISORDER
     Dosage: 30 MILLIGRAM, QD
     Route: 065

REACTIONS (4)
  - Insomnia [Unknown]
  - Hallucination, auditory [Unknown]
  - Mental disorder [Unknown]
  - Therapy cessation [Unknown]
